FAERS Safety Report 10263520 (Version 1)
Quarter: 2014Q2

REPORT INFORMATION
  Report Type: Spontaneous
  Country: GB (occurrence: GB)
  Receive Date: 20140626
  Receipt Date: 20140626
  Transmission Date: 20141212
  Serious: Yes (Other)
  Sender: FDA-Public Use
  Company Number: PHHY2014GB075230

PATIENT
  Age: 42 Year
  Sex: Female
  Weight: 130 kg

DRUGS (12)
  1. QUETIAPINE [Suspect]
     Dosage: 300 MG, 125MG IN MORNING, 175MG IN EVENING
     Route: 048
  2. RISPERIDONE [Suspect]
     Dosage: 3 MG, BID
     Route: 048
  3. LORAZEPAM [Suspect]
     Dosage: 1 MG, UP TO 4 MG IN 24 HOUR
     Route: 048
  4. ZOPICLONE [Suspect]
     Dosage: 7.5 MG, UNK
     Route: 048
  5. ORLISTAT [Concomitant]
     Dosage: 120 MG, TID
     Route: 048
  6. RAMIPRIL [Concomitant]
     Dosage: 5 MG, UNK
     Route: 048
  7. LITHIUM [Concomitant]
     Dosage: 1200 MG, UNK
     Route: 048
  8. PROCYCLIDINE [Concomitant]
     Dosage: 5 MG, BID
     Route: 048
  9. VENLAFAXINE [Concomitant]
     Dosage: 375 MG, UNK
     Route: 048
  10. LEVOTHYROXINE [Concomitant]
     Dosage: 125 UG, UNK
     Route: 048
  11. MIRTAZAPINE [Concomitant]
     Dosage: 45 MG, UNK
     Route: 048
  12. FOLIC ACID [Concomitant]
     Dosage: 5 MG, UNK
     Route: 048

REACTIONS (1)
  - Sleep apnoea syndrome [Recovered/Resolved with Sequelae]
